FAERS Safety Report 6162414-1 (Version None)
Quarter: 2009Q2

REPORT INFORMATION
  Report Type: 
  Country: None (occurrence: None)
  Receive Date: 20090421
  Receipt Date: 20090406
  Transmission Date: 20091009
  Serious: Yes (Other)
  Sender: FDA-Public Use
  Company Number: JP-PFIZER INC-2009184376

PATIENT

DRUGS (10)
  1. ATORVASTATIN CALCIUM [Suspect]
     Indication: HYPERLIPIDAEMIA
     Dosage: 10 MG, 1X/DAY
     Route: 048
     Dates: start: 20090202, end: 20090210
  2. ONON [Suspect]
     Indication: RHINITIS ALLERGIC
     Dosage: 225 MG, 2X/DAY
     Route: 048
     Dates: start: 20090206, end: 20090210
  3. EBASTEL [Concomitant]
     Dosage: UNK
  4. PATANOL [Concomitant]
     Dosage: UNK
     Route: 048
  5. CELESTAMINE [Concomitant]
     Dosage: UNK
     Route: 048
  6. SINLESTAL [Concomitant]
     Dosage: UNK
     Route: 048
  7. MEDICON [Concomitant]
     Dosage: UNK
     Dates: start: 20090206, end: 20090210
  8. MUCODYNE [Concomitant]
     Dosage: UNK
     Dates: start: 20090206, end: 20090210
  9. MUCOSOLVAN [Concomitant]
     Dosage: UNK
     Dates: start: 20090206, end: 20090210
  10. CLARITH [Concomitant]
     Dosage: UNK
     Dates: start: 20090206, end: 20090210

REACTIONS (1)
  - SYNCOPE [None]
